FAERS Safety Report 4999398-5 (Version None)
Quarter: 2006Q2

REPORT INFORMATION
  Report Type: 
  Country: None (occurrence: None)
  Receive Date: 20060509
  Receipt Date: 20060509
  Transmission Date: 20061013
  Serious: Yes (Life-Threatening, Hospitalization)
  Sender: FDA-Public Use
  Company Number: None

PATIENT
  Age: 66 Year
  Sex: Male

DRUGS (8)
  1. SOTALOL HCL [Suspect]
     Indication: ATRIAL FIBRILLATION
     Dosage: 80MG QD ON T, TH   BID ON SAT, SUN
  2. ISOTRETINOIN [Concomitant]
  3. BACTRIM [Concomitant]
  4. AZATHIOPRINE [Concomitant]
  5. CALCIUM CARBONATE [Concomitant]
  6. PREDNISONE TAB [Concomitant]
  7. TACROLIMUS [Concomitant]
  8. PANTOPRAZOLE [Concomitant]

REACTIONS (3)
  - CONTRAINDICATION TO MEDICAL TREATMENT [None]
  - TORSADE DE POINTES [None]
  - VENTRICULAR TACHYCARDIA [None]
